FAERS Safety Report 4616227-X (Version None)
Quarter: 2005Q1

REPORT INFORMATION
  Report Type: 
  Country: None (occurrence: None)
  Receive Date: 20050321
  Receipt Date: 20050308
  Transmission Date: 20050727
  Serious: Yes (Hospitalization, Disabling)
  Sender: FDA-Public Use
  Company Number: 2004-123632-NL

PATIENT
  Age: 42 Year
  Sex: Male
  Weight: 50.9 kg

DRUGS (2)
  1. REMERON [Suspect]
     Indication: DEPRESSION
     Dosage: 45 MG QD; ORAL
     Route: 048
     Dates: start: 20041201, end: 20041213
  2. ABILIFY [Suspect]
     Indication: PSYCHOTIC DISORDER
     Dosage: 10 MG DAILY; ORAL
     Route: 048
     Dates: start: 20041201, end: 20041213

REACTIONS (9)
  - ALCOHOLISM [None]
  - CONDITION AGGRAVATED [None]
  - INSOMNIA [None]
  - OEDEMA GENITAL [None]
  - PAIN [None]
  - POST PROCEDURAL COMPLICATION [None]
  - PRIAPISM [None]
  - SUICIDAL IDEATION [None]
  - TREMOR [None]
